FAERS Safety Report 25321160 (Version 1)
Quarter: 2025Q2

REPORT INFORMATION
  Report Type: Spontaneous
  Country: CA (occurrence: CA)
  Receive Date: 20250515
  Receipt Date: 20250515
  Transmission Date: 20250716
  Serious: Yes (Other)
  Sender: PRINSTON PHARMACEUTICAL
  Company Number: CA-PRINSTON PHARMACEUTICAL INC.-2025PRN00170

PATIENT
  Age: 29 Year
  Sex: Female

DRUGS (3)
  1. ARIPIPRAZOLE [Suspect]
     Active Substance: ARIPIPRAZOLE
     Dosage: 7.5 MG, 1X/DAY
     Dates: start: 2019, end: 2021
  2. ARIPIPRAZOLE [Suspect]
     Active Substance: ARIPIPRAZOLE
     Dosage: 15 MG, 1X/DAY
     Dates: start: 2021, end: 2023
  3. ARIPIPRAZOLE [Suspect]
     Active Substance: ARIPIPRAZOLE
     Dosage: 20 MG, 1X/DAY
     Dates: start: 2023, end: 2023

REACTIONS (1)
  - Substance use disorder [Recovered/Resolved]
